FAERS Safety Report 24902389 (Version 1)
Quarter: 2025Q1

REPORT INFORMATION
  Report Type: Report from Study
  Country: CL (occurrence: CL)
  Receive Date: 20250130
  Receipt Date: 20250130
  Transmission Date: 20250409
  Serious: Yes (Other)
  Sender: ALEXION PHARMACEUTICALS
  Company Number: CL-AstraZeneca-CH-00791962A

PATIENT
  Age: 60 Year

DRUGS (2)
  1. BENRALIZUMAB [Suspect]
     Active Substance: BENRALIZUMAB
     Indication: Asthma
     Dosage: 30 MILLIGRAM, Q8W
  2. OXYGEN [Concomitant]
     Active Substance: OXYGEN
     Route: 065

REACTIONS (9)
  - Foot fracture [Recovering/Resolving]
  - Cough [Recovering/Resolving]
  - Rhinitis allergic [Recovering/Resolving]
  - Headache [Recovering/Resolving]
  - Tachycardia [Not Recovered/Not Resolved]
  - Oxygen saturation decreased [Unknown]
  - Emotional disorder [Unknown]
  - Dyspnoea [Unknown]
  - Fall [Unknown]
